FAERS Safety Report 6310786-7 (Version None)
Quarter: 2009Q3

REPORT INFORMATION
  Report Type: 
  Country: None (occurrence: None)
  Receive Date: 20090812
  Receipt Date: 20090804
  Transmission Date: 20100115
  Serious: Yes (Hospitalization)
  Sender: FDA-Public Use
  Company Number: 342672

PATIENT
  Age: 14 Year
  Sex: Male
  Weight: 46.7 kg

DRUGS (7)
  1. METHOTREXATE [Suspect]
     Indication: ACUTE LYMPHOCYTIC LEUKAEMIA
     Dosage: 250 MG/M2  INTRAVENOUS,   380 MG INTRAVENOUS
     Route: 042
     Dates: start: 20090709
  2. METHOTREXATE [Suspect]
     Indication: ACUTE LYMPHOCYTIC LEUKAEMIA
     Dosage: 250 MG/M2  INTRAVENOUS,   380 MG INTRAVENOUS
     Route: 042
     Dates: start: 20090720
  3. METHOTREXATE [Suspect]
     Indication: ACUTE LYMPHOCYTIC LEUKAEMIA
     Dosage: 250 MG/M2  INTRAVENOUS,   380 MG INTRAVENOUS
     Route: 042
     Dates: start: 20090730
  4. VINCRISTINE [Concomitant]
  5. STERILE PENTAMIDINE ISETHIONATE, 300 MG, FLIPTOP VIAL (PENTAMIDINE) [Concomitant]
  6. MIRALAX [Concomitant]
  7. (KYTRIL  /01178101/) [Concomitant]

REACTIONS (9)
  - ALANINE AMINOTRANSFERASE INCREASED [None]
  - ASPARTATE AMINOTRANSFERASE INCREASED [None]
  - DRUG CLEARANCE DECREASED [None]
  - HEADACHE [None]
  - HEPATIC ENZYME INCREASED [None]
  - ORAL DISCOMFORT [None]
  - PAIN [None]
  - PYREXIA [None]
  - RENAL FAILURE [None]
